FAERS Safety Report 14494469 (Version 1)
Quarter: 2018Q1

REPORT INFORMATION
  Report Type: Spontaneous
  Country: US (occurrence: US)
  Receive Date: 20180206
  Receipt Date: 20180206
  Transmission Date: 20180509
  Serious: No
  Sender: FDA-Public Use
  Company Number: US-AMGEN-USASP2017075543

PATIENT
  Sex: Female

DRUGS (2)
  1. 5-FU [Concomitant]
     Active Substance: FLUOROURACIL
     Dosage: UNK UNK, Q2WK (ADMINISTERED ON WEDNESDAY AND REMOVED ON FRIDAY)
  2. NEULASTA [Suspect]
     Active Substance: PEGFILGRASTIM
     Indication: PRODUCT USED FOR UNKNOWN INDICATION
     Dosage: UNK, Q2WK (AFTER CHEMOTHERAPY)
     Route: 065

REACTIONS (1)
  - Inappropriate schedule of drug administration [Unknown]
